FAERS Safety Report 6553600-7 (Version None)
Quarter: 2010Q1

REPORT INFORMATION
  Report Type: 
  Country: None (occurrence: None)
  Receive Date: 20100127
  Receipt Date: 20100121
  Transmission Date: 20100710
  Serious: Yes (Death)
  Sender: FDA-Public Use
  Company Number: US-SANOFI-AVENTIS-2009SA011734

PATIENT
  Age: 54 Year
  Sex: Female

DRUGS (4)
  1. PLAVIX [Suspect]
     Route: 048
  2. METOPROLOL [Suspect]
     Route: 065
  3. VALIUM [Suspect]
     Route: 065
  4. SOMA [Suspect]
     Route: 065

REACTIONS (7)
  - BRADYCARDIA [None]
  - CARDIOVASCULAR DISORDER [None]
  - COMPLETED SUICIDE [None]
  - HAEMODYNAMIC INSTABILITY [None]
  - HYPOTENSION [None]
  - INTENTIONAL OVERDOSE [None]
  - INTRA-ABDOMINAL HAEMORRHAGE [None]
